FAERS Safety Report 25030772 (Version 2)
Quarter: 2025Q1

REPORT INFORMATION
  Report Type: Other
  Country: ES (occurrence: ES)
  Receive Date: 20250303
  Receipt Date: 20250313
  Transmission Date: 20250408
  Serious: Yes (Death, Other)
  Sender: ALVOGEN
  Company Number: ES-ALVOGEN-2025096365

PATIENT

DRUGS (13)
  1. VENLAFAXINE [Suspect]
     Active Substance: VENLAFAXINE HYDROCHLORIDE
     Indication: Depression
  2. FENTANYL [Suspect]
     Active Substance: FENTANYL
     Indication: Drug abuse
  3. PROPOFOL [Suspect]
     Active Substance: PROPOFOL
     Indication: Drug abuse
     Route: 042
  4. CLONAZEPAM [Suspect]
     Active Substance: CLONAZEPAM
     Indication: Intentional product misuse
  5. ALPRAZOLAM [Suspect]
     Active Substance: ALPRAZOLAM
     Indication: Intentional product misuse
  6. DIAZEPAM [Suspect]
     Active Substance: DIAZEPAM
     Indication: Intentional product misuse
  7. ZOLPIDEM [Suspect]
     Active Substance: ZOLPIDEM TARTRATE
     Indication: Intentional product misuse
  8. MORPHINE [Suspect]
     Active Substance: MORPHINE
     Indication: Product used for unknown indication
  9. METHADONE [Suspect]
     Active Substance: METHADONE HYDROCHLORIDE
     Indication: Product used for unknown indication
  10. QUETIAPINE [Suspect]
     Active Substance: QUETIAPINE
     Indication: Product used for unknown indication
  11. NAPROXEN [Suspect]
     Active Substance: NAPROXEN
     Indication: Product used for unknown indication
  12. ONDANSETRON [Suspect]
     Active Substance: ONDANSETRON
     Indication: Product used for unknown indication
  13. METOCLOPRAMIDE [Suspect]
     Active Substance: METOCLOPRAMIDE
     Indication: Product used for unknown indication

REACTIONS (5)
  - Non-cardiogenic pulmonary oedema [Fatal]
  - Drug dependence [Fatal]
  - Multiple drug therapy [Fatal]
  - Drug abuse [Fatal]
  - Accidental overdose [Fatal]
